FAERS Safety Report 5434318-0 (Version None)
Quarter: 2007Q3

REPORT INFORMATION
  Report Type: 
  Country: None (occurrence: None)
  Receive Date: 20070831
  Receipt Date: 20070821
  Transmission Date: 20080115
  Serious: Yes (Hospitalization)
  Sender: FDA-Public Use
  Company Number: US-AMGEN-US234262

PATIENT
  Sex: Female
  Weight: 50.8 kg

DRUGS (8)
  1. NEULASTA [Suspect]
     Indication: CHEMOTHERAPY
     Route: 058
     Dates: start: 20070503
  2. ASCORBIC ACID [Concomitant]
     Route: 065
  3. CENTRUM [Concomitant]
     Route: 065
  4. CALCIUM [Concomitant]
     Route: 065
  5. FLUOROURACIL [Concomitant]
     Route: 065
  6. DOXORUBICIN HYDROCHLORIDE [Concomitant]
     Route: 065
  7. CYCLOPHOSPHAMIDE [Concomitant]
     Route: 065
  8. TAXOTERE [Concomitant]
     Route: 065

REACTIONS (1)
  - FEBRILE NEUTROPENIA [None]
